FAERS Safety Report 21166511 (Version 2)
Quarter: 2022Q3

REPORT INFORMATION
  Report Type: Report from Study
  Country: US (occurrence: US)
  Receive Date: 20220803
  Receipt Date: 20220906
  Transmission Date: 20221027
  Serious: Yes (Hospitalization)
  Sender: FDA-Public Use
  Company Number: US-GBT-014793

PATIENT
  Age: 43 Year
  Sex: Female

DRUGS (13)
  1. OXBRYTA [Suspect]
     Active Substance: VOXELOTOR
     Indication: Sickle cell disease
     Dates: start: 20200128, end: 202007
  2. FENTANYL [Concomitant]
     Active Substance: FENTANYL
     Indication: Sickle cell disease
     Route: 042
     Dates: start: 20200812, end: 20200812
  3. FENTANYL [Concomitant]
     Active Substance: FENTANYL
     Indication: Sickle cell disease
     Route: 042
     Dates: start: 20200812, end: 20200812
  4. FENTANYL [Concomitant]
     Active Substance: FENTANYL
     Indication: Sickle cell disease
     Route: 042
     Dates: start: 20200812, end: 20200814
  5. FENTANYL [Concomitant]
     Active Substance: FENTANYL
     Indication: Sickle cell disease
     Route: 042
     Dates: start: 20200812, end: 20200812
  6. FENTANYL [Concomitant]
     Active Substance: FENTANYL
     Indication: Sickle cell disease
     Dosage: 25-50 UG
     Route: 042
     Dates: start: 20200812, end: 20200812
  7. FENTANYL [Concomitant]
     Active Substance: FENTANYL
     Indication: Sickle cell disease
     Route: 042
     Dates: start: 20200813, end: 20200813
  8. HYDROXYUREA [Concomitant]
     Active Substance: HYDROXYUREA
     Indication: Sickle cell disease
     Route: 048
     Dates: start: 20160427
  9. FOLIC ACID [Concomitant]
     Active Substance: FOLIC ACID
     Indication: Sickle cell disease
     Route: 048
     Dates: start: 20140804
  10. VITAMIN B12 [Concomitant]
     Active Substance: CYANOCOBALAMIN
     Indication: Sickle cell disease
     Route: 030
     Dates: start: 20150624
  11. ACETAMINOPHEN [Concomitant]
     Active Substance: ACETAMINOPHEN
     Indication: Sickle cell disease
     Route: 048
     Dates: start: 20200812, end: 20200812
  12. HYDROMORPHONE [Concomitant]
     Active Substance: HYDROMORPHONE
     Indication: Sickle cell disease
     Route: 042
     Dates: start: 20200812, end: 20200812
  13. EPOETIN ALFA [Concomitant]
     Active Substance: ERYTHROPOIETIN
     Indication: Sickle cell disease
     Dosage: DOSAGE: 20000 U
     Route: 058
     Dates: start: 20190329, end: 20200903

REACTIONS (1)
  - Loss of consciousness [Recovered/Resolved]

NARRATIVE: CASE EVENT DATE: 20200710
